FAERS Safety Report 9152236 (Version 1)
Quarter: 2013Q1

REPORT INFORMATION
  Report Type: Spontaneous
  Country: US (occurrence: US)
  Receive Date: 20130308
  Receipt Date: 20130308
  Transmission Date: 20140127
  Serious: No
  Sender: FDA-Public Use
  Company Number: US-ASTRAZENECA-2013SE05497

PATIENT
  Age: 65 Year
  Sex: Female

DRUGS (11)
  1. RHINOCORT AQUA [Suspect]
     Indication: NASAL CONGESTION
     Dosage: THREE SQUIRT DAILY
     Route: 045
  2. RHINOCORT AQUA [Suspect]
     Indication: NASAL CONGESTION
     Dosage: ONE SQUIRT
     Route: 045
  3. PRILOSEC [Suspect]
     Indication: GASTROOESOPHAGEAL REFLUX DISEASE
     Route: 048
     Dates: start: 201005
  4. NAPROSYN [Concomitant]
     Indication: ARTHRALGIA
  5. TRAMADOL [Concomitant]
     Indication: ARTHRALGIA
  6. DIOVAN HCT [Concomitant]
     Indication: HYPERTENSION
  7. CATAPRES [Concomitant]
     Indication: HYPERTENSION
  8. GLUCOPHAGE [Concomitant]
     Indication: BLOOD GLUCOSE INCREASED
  9. SYNTHROID [Concomitant]
     Indication: HYPOTHYROIDISM
  10. HCTZ [Concomitant]
     Indication: HYPERTENSION
  11. BONINE [Concomitant]
     Indication: DIZZINESS

REACTIONS (9)
  - Arthritis [Unknown]
  - Blood glucose increased [Unknown]
  - Body height decreased [Unknown]
  - Chronic obstructive pulmonary disease [Unknown]
  - Dizziness [Unknown]
  - Headache [Not Recovered/Not Resolved]
  - Hypertension [Unknown]
  - Intervertebral disc degeneration [Unknown]
  - Sinus congestion [Unknown]
